FAERS Safety Report 24956969 (Version 1)
Quarter: 2025Q1

REPORT INFORMATION
  Report Type: Spontaneous
  Country: GB (occurrence: GB)
  Receive Date: 20250211
  Receipt Date: 20250211
  Transmission Date: 20250409
  Serious: Yes (Other)
  Sender: ELI LILLY AND COMPANY
  Company Number: GB-ELI_LILLY_AND_COMPANY-GB202501022471

PATIENT
  Age: 55 Year
  Sex: Female

DRUGS (3)
  1. MOUNJARO [Interacting]
     Active Substance: TIRZEPATIDE
     Indication: Weight control
     Route: 065
     Dates: start: 202408
  2. RAMIPRIL [Interacting]
     Active Substance: RAMIPRIL
     Indication: Product used for unknown indication
     Route: 065
  3. NAPROXEN [Concomitant]
     Active Substance: NAPROXEN
     Indication: Product used for unknown indication

REACTIONS (16)
  - Psychotic disorder [Unknown]
  - Anger [Unknown]
  - Memory impairment [Unknown]
  - Irritability [Unknown]
  - Depression [Unknown]
  - Aggression [Unknown]
  - Affective disorder [Unknown]
  - Drug dependence [Unknown]
  - Back pain [Unknown]
  - Renal pain [Unknown]
  - Cachexia [Unknown]
  - Incoherent [Unknown]
  - Pallor [Unknown]
  - Mood swings [Unknown]
  - Decreased appetite [Unknown]
  - Drug interaction [Unknown]
